FAERS Safety Report 19756031 (Version 6)
Quarter: 2023Q1

REPORT INFORMATION
  Report Type: Report from Study
  Country: US (occurrence: US)
  Receive Date: 20210827
  Receipt Date: 20230302
  Transmission Date: 20230417
  Serious: Yes (Hospitalization)
  Sender: FDA-Public Use
  Company Number: US-009507513-2106USA001428

PATIENT
  Age: 61 Year
  Sex: Female
  Weight: 77.29 kg

DRUGS (16)
  1. BELZUTIFAN [Suspect]
     Active Substance: BELZUTIFAN
     Indication: Renal cell carcinoma
     Dosage: 120 MILLIGRAM, QD
     Route: 048
     Dates: start: 20210513, end: 20210531
  2. BELZUTIFAN [Suspect]
     Active Substance: BELZUTIFAN
     Dosage: REDUCED DOSE AT 80 MILLIGRAM, QD
     Route: 048
     Dates: start: 20210610, end: 20210623
  3. BELZUTIFAN [Suspect]
     Active Substance: BELZUTIFAN
     Dosage: REDUCED DOSE AT 40 MILLIGRAM, QD
     Route: 048
     Dates: start: 20210629
  4. LENVATINIB MESYLATE [Suspect]
     Active Substance: LENVATINIB MESYLATE
     Indication: Renal cell carcinoma
     Dosage: 20 MILLIGRAM, QD
     Route: 048
     Dates: start: 20210513, end: 20210531
  5. LENVATINIB MESYLATE [Suspect]
     Active Substance: LENVATINIB MESYLATE
     Dosage: 20 MILLIGRAM, QD
     Route: 048
     Dates: start: 20210602, end: 20210615
  6. LENVATINIB MESYLATE [Suspect]
     Active Substance: LENVATINIB MESYLATE
     Dosage: 14 MILLIGRAM, QD
     Route: 048
     Dates: start: 20210629
  7. VITAMINS NOS [Concomitant]
     Active Substance: VITAMINS
     Indication: Vitamin supplementation
     Dosage: 1 TABLET, QD
     Route: 048
     Dates: start: 200101
  8. PAROXETINE [Concomitant]
     Active Substance: PAROXETINE
     Indication: Hot flush
     Dosage: 10 MILLIGRAM, QD
     Route: 048
     Dates: start: 20200211
  9. COMPAZINE [Concomitant]
     Active Substance: PROCHLORPERAZINE MALEATE
     Indication: Nausea
     Dosage: 40  MG DAILY, PRN
     Route: 048
     Dates: start: 20200520
  10. LIDOCAINE\PRILOCAINE [Concomitant]
     Active Substance: LIDOCAINE\PRILOCAINE
     Indication: Catheter site pain
     Dosage: 2.5% DAILY, PRN
     Route: 061
     Dates: start: 20200520
  11. LEVOTHYROXINE SODIUM [Concomitant]
     Active Substance: LEVOTHYROXINE SODIUM
     Indication: Hypothyroidism
     Dosage: 75 MICROGRAM, QD
     Route: 048
     Dates: start: 20210310, end: 20210709
  12. EXCEDRIN EXTRA STRENGTH [Concomitant]
     Active Substance: ACETAMINOPHEN\ASPIRIN\CAFFEINE
     Indication: Headache
     Dosage: 1000  MG DAILY, PRN
     Route: 048
     Dates: start: 20210515
  13. TYLENOL [Concomitant]
     Active Substance: ACETAMINOPHEN
     Indication: Arthralgia
     Dosage: 4000  MG DAILY, PRN
     Route: 048
     Dates: start: 20210522
  14. TYLENOL [Concomitant]
     Active Substance: ACETAMINOPHEN
     Indication: Pain
     Dosage: 500 MG DAILY, PRN
     Route: 048
     Dates: start: 20210522
  15. ONDANSETRON [Concomitant]
     Active Substance: ONDANSETRON
     Indication: Nausea
     Dosage: 24  MG DAILY, PRN
     Route: 048
     Dates: start: 20210531
  16. HERBALS\TURMERIC [Concomitant]
     Active Substance: HERBALS\TURMERIC
     Indication: Routine health maintenance
     Dosage: 2 CAPSULES, QD; STRENGTH: 2 CAPSULE
     Route: 048
     Dates: start: 202103, end: 202107

REACTIONS (2)
  - Hypoxia [Recovered/Resolved]
  - Hypoxia [Recovered/Resolved]

NARRATIVE: CASE EVENT DATE: 20210601
